FAERS Safety Report 6541201-6 (Version None)
Quarter: 2010Q1

REPORT INFORMATION
  Report Type: 
  Country: None (occurrence: None)
  Receive Date: 20100118
  Receipt Date: 20100114
  Transmission Date: 20100710
  Serious: Yes (Hospitalization)
  Sender: FDA-Public Use
  Company Number: B0626460A

PATIENT
  Sex: Female

DRUGS (1)
  1. AUGMENTIN '125' [Suspect]
     Indication: MASTITIS
     Dosage: 3G PER DAY
     Route: 048
     Dates: start: 20090117, end: 20090118

REACTIONS (2)
  - THROAT TIGHTNESS [None]
  - TONGUE OEDEMA [None]
